FAERS Safety Report 23395184 (Version 3)
Quarter: 2024Q1

REPORT INFORMATION
  Report Type: Spontaneous
  Country: CA (occurrence: CA)
  Receive Date: 20240112
  Receipt Date: 20240215
  Transmission Date: 20240410
  Serious: Yes (Other)
  Sender: FDA-Public Use
  Company Number: CA-ALK-ABELLO A/S-2023AA004605

PATIENT

DRUGS (4)
  1. BROMUS INERMIS POLLEN [Suspect]
     Active Substance: BROMUS INERMIS POLLEN
     Indication: Product used for unknown indication
     Route: 065
  2. DACTYLIS GLOMERATA POLLEN [Suspect]
     Active Substance: DACTYLIS GLOMERATA POLLEN
     Route: 065
  3. ALFALFA POLLEN [Suspect]
     Active Substance: MEDICAGO SATIVA POLLEN
     Indication: Product used for unknown indication
     Route: 065
  4. STERILE DILUENT FOR ALLERGENIC EXTRACT NOS [Suspect]
     Active Substance: ALBUMIN HUMAN OR GLYCERIN OR PHENOL
     Indication: Product used for unknown indication
     Route: 065

REACTIONS (4)
  - Anaphylactic reaction [Unknown]
  - Nodule [Unknown]
  - Anaphylactic reaction [Unknown]
  - Anaphylactic reaction [Unknown]

NARRATIVE: CASE EVENT DATE: 20231025
